FAERS Safety Report 6988559-1 (Version None)
Quarter: 2010Q3

REPORT INFORMATION
  Report Type: 
  Country: None (occurrence: None)
  Receive Date: 20100827
  Receipt Date: 20100706
  Transmission Date: 20110219
  Serious: Yes (Life-Threatening)
  Sender: FDA-Public Use
  Company Number: 002380

PATIENT
  Sex: Female
  Weight: 53.6 kg

DRUGS (7)
  1. LACOSAMIDE [Suspect]
     Indication: CONVULSION
     Dosage: 200 MG BID; 100 MG BID ORAL
     Route: 048
     Dates: start: 20090101, end: 20090101
  2. LACOSAMIDE [Suspect]
     Indication: CONVULSION
     Dosage: 200 MG BID; 100 MG BID ORAL
     Route: 048
     Dates: start: 20090101
  3. KEPPRA [Suspect]
     Dosage: 1500 MG TID ORAL, 1000 MG TID ORAL
     Route: 048
     Dates: start: 20090101, end: 20100605
  4. KEPPRA [Suspect]
     Dosage: 1500 MG TID ORAL, 1000 MG TID ORAL
     Route: 048
     Dates: start: 20090101
  5. LYRICA [Concomitant]
  6. KEPPRA [Suspect]
     Dosage: 3000MG QD ORAL, 3750, 750 MG, 3 TABLETS AT NIGT AND 2 IN THE MORNING ORAL)
     Dates: start: 20100101
  7. KEPPRA [Suspect]
     Dosage: 3000MG QD ORAL, 3750, 750 MG, 3 TABLETS AT NIGT AND 2 IN THE MORNING ORAL)
     Dates: start: 20100605

REACTIONS (4)
  - ACNE [None]
  - DEPRESSION SUICIDAL [None]
  - FATIGUE [None]
  - INAPPROPRIATE SCHEDULE OF DRUG ADMINISTRATION [None]
